FAERS Safety Report 6152011-6 (Version None)
Quarter: 2009Q2

REPORT INFORMATION
  Report Type: 
  Country: None (occurrence: None)
  Receive Date: 20090410
  Receipt Date: 20090331
  Transmission Date: 20091009
  Serious: Yes (Other)
  Sender: FDA-Public Use
  Company Number: PHHY2009US12170

PATIENT
  Sex: Male

DRUGS (3)
  1. TEKTURNA HCT [Suspect]
  2. LOTREL [Suspect]
     Dosage: UNK
  3. DIOVAN HCT [Suspect]

REACTIONS (1)
  - BLOOD PRESSURE INCREASED [None]
